FAERS Safety Report 15508260 (Version 1)
Quarter: 2018Q4

REPORT INFORMATION
  Report Type: Spontaneous
  Country: DE (occurrence: DE)
  Receive Date: 20181016
  Receipt Date: 20181016
  Transmission Date: 20190205
  Serious: Yes (Other)
  Sender: FDA-Public Use
  Company Number: DE-PENTEC HEALTH-2018PEN00053

PATIENT

DRUGS (1)
  1. MAGNESIUM SULFATE. [Suspect]
     Active Substance: MAGNESIUM SULFATE
     Indication: SUBARACHNOID HAEMORRHAGE
     Dosage: 16 MMOL IV OVER 30 MINUTES, FOLLOWED BY A CONTINUOUS INFUSION AT 8 MMOL/HOUR
     Route: 042

REACTIONS (1)
  - Tetany [Recovered/Resolved]
